FAERS Safety Report 8114623 (Version 3)
Quarter: 2017Q4

REPORT INFORMATION
  Report Type: Report from Study
  Country: DE (occurrence: DE)
  Receive Date: 20110831
  Receipt Date: 20171130
  Transmission Date: 20180321
  Serious: Yes (Hospitalization, Other)
  Sender: FDA-Public Use
  Company Number: DE-CELGENEUS-062-50794-11082079

PATIENT
  Age: 50 Year
  Sex: Female
  Weight: 68 kg

DRUGS (14)
  1. TAVANIC [Concomitant]
     Active Substance: LEVOFLOXACIN
     Indication: INFECTION PROPHYLAXIS
     Route: 065
     Dates: start: 20110712, end: 20110716
  2. PANTOZOL [Concomitant]
     Active Substance: PANTOPRAZOLE SODIUM
     Indication: GASTRIC PH DECREASED
     Route: 065
     Dates: start: 20110712, end: 20110716
  3. KEVATRIL [Concomitant]
     Active Substance: GRANISETRON HYDROCHLORIDE
     Indication: NAUSEA
     Route: 065
     Dates: start: 20110712, end: 20110719
  4. AMPHO MORONAL [Concomitant]
     Active Substance: AMPHOTERICIN B
     Indication: ANTIFUNGAL PROPHYLAXIS
     Route: 065
     Dates: start: 20110712, end: 20110808
  5. IDARUBICIN [Suspect]
     Active Substance: IDARUBICIN
     Indication: ACUTE MYELOID LEUKAEMIA
     Dosage: 21 MILLIGRAM
     Route: 065
     Dates: start: 20110810, end: 20110810
  6. ACICLOVIR [Concomitant]
     Active Substance: ACYCLOVIR
     Indication: INFECTION PROPHYLAXIS
     Route: 065
     Dates: start: 20110712, end: 20110716
  7. AZACITIDINE. [Suspect]
     Active Substance: AZACITIDINE
     Indication: ACUTE MYELOID LEUKAEMIA
     Route: 065
     Dates: start: 20110715, end: 20110719
  8. AZACITIDINE. [Suspect]
     Active Substance: AZACITIDINE
     Route: 065
     Dates: start: 20110813, end: 20110817
  9. ETOPOSIDE. [Suspect]
     Active Substance: ETOPOSIDE
     Indication: ACUTE MYELOID LEUKAEMIA
     Dosage: 175 MILLIGRAM
     Route: 065
     Dates: start: 20110810, end: 20110812
  10. JODID [Concomitant]
     Active Substance: IODINE
     Indication: THYROID DISORDER
     Route: 065
     Dates: start: 20110712, end: 20110808
  11. XIPAMID [Concomitant]
     Active Substance: XIPAMIDE
     Indication: OEDEMA
     Route: 065
     Dates: start: 20110715, end: 20110801
  12. CEFUROXIME. [Concomitant]
     Active Substance: CEFUROXIME
     Indication: INFECTION
     Route: 065
     Dates: start: 20110718, end: 20110801
  13. DIARONT [Concomitant]
     Indication: INFECTION PROPHYLAXIS
     Route: 065
     Dates: start: 20110713, end: 20110808
  14. FORTECORTIN [Concomitant]
     Active Substance: DEXAMETHASONE
     Indication: NAUSEA
     Route: 065
     Dates: start: 20110712, end: 20110716

REACTIONS (2)
  - Hepatic function abnormal [Recovered/Resolved]
  - Hepatobiliary disease [Recovered/Resolved]

NARRATIVE: CASE EVENT DATE: 20110812
